FAERS Safety Report 8175003-4 (Version None)
Quarter: 2012Q1

REPORT INFORMATION
  Report Type: 
  Country: None (occurrence: None)
  Receive Date: 20120229
  Receipt Date: 20110406
  Transmission Date: 20120608
  Serious: Yes (Hospitalization)
  Sender: FDA-Public Use
  Company Number: US-GLAXOSMITHKLINE-A0877064A

PATIENT
  Age: 82 Year
  Sex: Male
  Weight: 101 kg

DRUGS (3)
  1. MELPHALAN HYDROCHLORIDE [Suspect]
     Indication: MULTIPLE MYELOMA
     Dosage: 9MGM2 SEE DOSAGE TEXT
     Route: 048
     Dates: start: 20100317, end: 20100429
  2. VELCADE [Suspect]
     Indication: MULTIPLE MYELOMA
     Route: 042
     Dates: start: 20100317, end: 20100429
  3. PAIN MEDICATION [Suspect]
     Route: 065

REACTIONS (2)
  - NAUSEA [None]
  - VOMITING [None]
